FAERS Safety Report 17299202 (Version 1)
Quarter: 2020Q1

REPORT INFORMATION
  Report Type: Spontaneous
  Country: US (occurrence: US)
  Receive Date: 20200122
  Receipt Date: 20200122
  Transmission Date: 20200409
  Serious: No
  Sender: FDA-Public Use
  Company Number: US-GLAXOSMITHKLINE-US2020007941

PATIENT
  Sex: Female

DRUGS (2)
  1. ABREVA [Suspect]
     Active Substance: DOCOSANOL
     Indication: ORAL HERPES
     Dosage: UNK
     Route: 065
  2. PROPOLIS [Concomitant]
     Active Substance: PROPOLIS WAX
     Indication: ORAL HERPES
     Dosage: UNK
     Route: 065

REACTIONS (5)
  - Lip dry [Unknown]
  - Drug ineffective [Unknown]
  - Condition aggravated [Unknown]
  - Oral herpes [Unknown]
  - Chapped lips [Unknown]
